FAERS Safety Report 26135782 (Version 1)
Quarter: 2025Q4

REPORT INFORMATION
  Report Type: Spontaneous
  Country: US (occurrence: US)
  Receive Date: 20251209
  Receipt Date: 20251209
  Transmission Date: 20260117
  Serious: Yes (Other)
  Sender: BRISTOL-MYERS SQUIBB COMPANY
  Company Number: US-BRISTOL-MYERS SQUIBB COMPANY-2025-163946

PATIENT
  Age: 62 Year
  Sex: Male

DRUGS (4)
  1. COBENFY [Suspect]
     Active Substance: TROSPIUM CHLORIDE\XANOMELINE
     Indication: Schizophrenia
     Dosage: 50/20 BID
  2. COBENFY [Suspect]
     Active Substance: TROSPIUM CHLORIDE\XANOMELINE
     Dosage: 100/20 BID
  3. COBENFY [Suspect]
     Active Substance: TROSPIUM CHLORIDE\XANOMELINE
     Dosage: 125/30 BID
  4. QUETIAPINE [Concomitant]
     Active Substance: QUETIAPINE
     Indication: Schizophrenia

REACTIONS (2)
  - Nausea [Unknown]
  - Urinary retention [Unknown]
